FAERS Safety Report 22013715 (Version 1)
Quarter: 2023Q1

REPORT INFORMATION
  Report Type: Spontaneous
  Country: CN (occurrence: CN)
  Receive Date: 20230221
  Receipt Date: 20230221
  Transmission Date: 20230417
  Serious: Yes (Other)
  Sender: FDA-Public Use
  Company Number: None

PATIENT
  Age: 50 Year
  Sex: Female
  Weight: 60 kg

DRUGS (14)
  1. CYCLOPHOSPHAMIDE [Suspect]
     Active Substance: CYCLOPHOSPHAMIDE
     Indication: Invasive breast carcinoma
     Dosage: AT 8:31, 850 MG (0.85 G), QD, DILUTED WITH 100 ML 0.9% SODIUM CHLORIDE,  AS A PART OF SECOND CYCLE O
     Route: 041
     Dates: start: 20230127, end: 20230127
  2. CYCLOPHOSPHAMIDE [Suspect]
     Active Substance: CYCLOPHOSPHAMIDE
     Indication: Chemotherapy
  3. SODIUM CHLORIDE [Suspect]
     Active Substance: SODIUM CHLORIDE
     Indication: Medication dilution
     Dosage: AT 8:31, 0.9%, 100 ML, QD, USED TO DILUTE 140 MG EPIRUBICIN, AS A PART OF SECOND CYCLE OF EC REGIMEN
     Route: 041
     Dates: start: 20230127, end: 20230127
  4. EPIRUBICIN [Suspect]
     Active Substance: EPIRUBICIN
     Indication: Invasive breast carcinoma
     Dosage: AT 8:31, 140 MG, QD, DILUTED WITH 100 ML 0.9% SODIUM CHLORIDE, AS A PART OF SECOND CYCLE OF EC REGIM
     Route: 041
     Dates: start: 20230127, end: 20230127
  5. EPIRUBICIN [Suspect]
     Active Substance: EPIRUBICIN
     Indication: Chemotherapy
  6. SODIUM CHLORIDE [Suspect]
     Active Substance: SODIUM CHLORIDE
     Indication: Invasive breast carcinoma
     Dosage: AT 8:31, 100 ML, QD, USED TO DILUTE 850 MG (0.85 G) CYCLOPHOSPHAMIDE, AS A PART OF SECOND CYCLE OF E
     Route: 041
     Dates: start: 20230127, end: 20230127
  7. SODIUM CHLORIDE [Suspect]
     Active Substance: SODIUM CHLORIDE
     Indication: Chemotherapy
  8. TROPISETRON [Concomitant]
     Active Substance: TROPISETRON
     Indication: Prophylaxis of nausea and vomiting
     Dosage: AT 8: 02, 5 MG, DILUTED WITH 5 ML 0.9% SODIUM CHLORIDE
     Route: 042
     Dates: start: 20230127
  9. TROPISETRON [Concomitant]
     Active Substance: TROPISETRON
     Dosage: 5 MG, DILUTED WITH 5 ML 0.9% SODIUM CHLORIDE, AFTER CHEMOTHERAPY
     Route: 042
     Dates: start: 20230127
  10. DEXAMETHASONE [Concomitant]
     Active Substance: DEXAMETHASONE
     Indication: Prophylaxis of nausea and vomiting
     Dosage: 5 MG
     Route: 042
     Dates: start: 20230127
  11. OMEPRAZOLE SODIUM [Concomitant]
     Active Substance: OMEPRAZOLE SODIUM
     Indication: Prophylaxis
     Dosage: 40 MG, DILUTED WITH 100 ML 0.9% SODIUM CHLORIDE, AFTER CHEMOTHERAPY
     Route: 065
     Dates: start: 20230127
  12. SODIUM CHLORIDE [Concomitant]
     Active Substance: SODIUM CHLORIDE
     Indication: Vehicle solution use
     Dosage: AT 8: 02, 5 ML, USED TO DILUTE 5 MG TROPISETRON
     Route: 042
     Dates: start: 20230127
  13. SODIUM CHLORIDE [Concomitant]
     Active Substance: SODIUM CHLORIDE
     Dosage: 5 ML, USED TO DILUTE 5 MG TROPISETRON, AFTER CHEMOTHERAPY
     Route: 042
     Dates: start: 20230127
  14. SODIUM CHLORIDE [Concomitant]
     Active Substance: SODIUM CHLORIDE
     Dosage: 100 ML, USED TO DILUTE 40 MG OMEPRAZOLE SODIUM, AFTER CHEMOTHERAPY
     Route: 065
     Dates: start: 20230127

REACTIONS (2)
  - Nausea [Recovering/Resolving]
  - Vomiting [Recovering/Resolving]

NARRATIVE: CASE EVENT DATE: 20230128
